FAERS Safety Report 4921247-1 (Version None)
Quarter: 2006Q1

REPORT INFORMATION
  Report Type: 
  Country: None (occurrence: None)
  Receive Date: 20060222
  Receipt Date: 20060222
  Transmission Date: 20060701
  Serious: Yes (Hospitalization)
  Sender: FDA-Public Use
  Company Number: None

PATIENT
  Sex: Male

DRUGS (16)
  1. CHLORDIAZEPOXIDE [Suspect]
     Indication: ALCOHOL WITHDRAWAL SYNDROME
     Dates: start: 20051108, end: 20051114
  2. ALBUTEROL [Concomitant]
  3. IPRATROPIUM BROMIDE [Concomitant]
  4. ACETAMINOPHEN [Concomitant]
  5. ATENOLOL [Concomitant]
  6. LORAZEPAM [Concomitant]
  7. CALCIUM CARBONATE [Concomitant]
  8. CITALOPRAM HYDROBROMIDE [Concomitant]
  9. FOLIC ACID [Concomitant]
  10. MULTIVITAMINS WITH MINERALS [Concomitant]
  11. THIAMINE [Concomitant]
  12. POTASSIUM CHLORIDE [Concomitant]
  13. NICOTINE [Concomitant]
  14. LOPERAMIDE [Concomitant]
  15. HEPARIN [Concomitant]
  16. INSULIN [Concomitant]

REACTIONS (6)
  - DYSPNOEA [None]
  - LOSS OF CONSCIOUSNESS [None]
  - MENTAL STATUS CHANGES [None]
  - MYOCARDIAL INFARCTION [None]
  - SEDATION [None]
  - TACHYPNOEA [None]
